FAERS Safety Report 25359326 (Version 1)
Quarter: 2025Q2

REPORT INFORMATION
  Report Type: Spontaneous
  Country: US (occurrence: US)
  Receive Date: 20250526
  Receipt Date: 20250526
  Transmission Date: 20250717
  Serious: No
  Sender: ACCORD
  Company Number: US-Accord-469635

PATIENT
  Sex: Female

DRUGS (16)
  1. METHOTREXATE [Suspect]
     Active Substance: METHOTREXATE
     Indication: Product used for unknown indication
  2. LEVOTHYROXINE SODIUM [Concomitant]
     Active Substance: LEVOTHYROXINE SODIUM
  3. PREDNISONE [Concomitant]
     Active Substance: PREDNISONE
  4. RITUXAN [Concomitant]
     Active Substance: RITUXIMAB
  5. SULFASALAZINE [Concomitant]
     Active Substance: SULFASALAZINE
  6. OMEPRAZOLE [Concomitant]
     Active Substance: OMEPRAZOLE
  7. CYCLOBENZAPRINE [Concomitant]
     Active Substance: CYCLOBENZAPRINE
  8. LOSARTAN [Concomitant]
     Active Substance: LOSARTAN
  9. TRAMADOL [Concomitant]
     Active Substance: TRAMADOL
  10. METHOTREXATE [Concomitant]
     Active Substance: METHOTREXATE
  11. ENBREL [Concomitant]
     Active Substance: ETANERCEPT
  12. ABATACEPT [Concomitant]
     Active Substance: ABATACEPT
  13. TOFACITINIB [Concomitant]
     Active Substance: TOFACITINIB
  14. CERTOLIZUMAB PEGOL [Concomitant]
     Active Substance: CERTOLIZUMAB PEGOL
  15. UPADACITINIB [Concomitant]
     Active Substance: UPADACITINIB
  16. HYDROXYCHLOROQUINE [Concomitant]
     Active Substance: HYDROXYCHLOROQUINE

REACTIONS (1)
  - Drug ineffective [Unknown]
